FAERS Safety Report 4326145-2 (Version None)
Quarter: 2004Q1

REPORT INFORMATION
  Report Type: 
  Country: None (occurrence: None)
  Receive Date: 20040323
  Receipt Date: 20040107
  Transmission Date: 20041129
  Serious: No
  Sender: FDA-Public Use
  Company Number: USA040155979

PATIENT
  Age: 53 Year
  Sex: Male
  Weight: 120 kg

DRUGS (8)
  1. CIALIS [Suspect]
     Indication: ERECTILE DYSFUNCTION
     Dosage: 20 MG/AS NEEDED
     Dates: start: 20040101
  2. LIPITOR [Concomitant]
  3. LOPID [Concomitant]
  4. CAPOTEN [Concomitant]
  5. PAXIL [Concomitant]
  6. GLUCOPHAGE [Concomitant]
  7. ACTOS [Concomitant]
  8. LANTUS [Concomitant]

REACTIONS (1)
  - DRUG INEFFECTIVE [None]
